FAERS Safety Report 5012616-2 (Version None)
Quarter: 2006Q2

REPORT INFORMATION
  Report Type: 
  Country: None (occurrence: None)
  Receive Date: 20060411
  Receipt Date: 20060111
  Transmission Date: 20061013
  Serious: No
  Sender: FDA-Public Use
  Company Number: 2006S1000006

PATIENT
  Age: 54 Year
  Sex: Male
  Weight: 164 kg

DRUGS (8)
  1. CUBICIN [Suspect]
     Indication: STAPHYLOCOCCAL OSTEOMYELITIS
     Dosage: 600 MG;Q24H;IV
     Route: 042
     Dates: start: 20051223, end: 20060102
  2. ATORVASTATIN CALCIUM [Concomitant]
  3. VANCOMYCIN [Concomitant]
  4. ATENOLOL [Concomitant]
  5. AMLODIPINE [Concomitant]
  6. WARFARIN SODIUM [Concomitant]
  7. NITROGLYCERIN [Concomitant]
  8. HEPARIN [Concomitant]

REACTIONS (3)
  - ASTHENIA [None]
  - BLOOD CREATINE PHOSPHOKINASE INCREASED [None]
  - PAIN IN EXTREMITY [None]
